FAERS Safety Report 4989417-4 (Version None)
Quarter: 2006Q2

REPORT INFORMATION
  Report Type: 
  Country: None (occurrence: None)
  Receive Date: 20060426
  Receipt Date: 20060414
  Transmission Date: 20061013
  Serious: No
  Sender: FDA-Public Use
  Company Number: USA0510111538

PATIENT
  Age: 37 Year
  Sex: Female
  Weight: 136.1 kg

DRUGS (5)
  1. CYMBALTA [Suspect]
     Indication: NEUROPATHY PERIPHERAL
     Dosage: 30 MG; 60 MG
     Dates: start: 20050401
  2. METFORMIN [Concomitant]
  3. GLIPIZIDE [Concomitant]
  4. LISINOPRIL [Concomitant]
  5. ACE INHIBITOR NOS [Concomitant]

REACTIONS (1)
  - HEPATIC ENZYME INCREASED [None]
